FAERS Safety Report 8859194 (Version 2)
Quarter: 2012Q4

REPORT INFORMATION
  Report Type: 
  Country: US (occurrence: US)
  Receive Date: 20121024
  Receipt Date: 20121203
  Transmission Date: 20130627
  Serious: No
  Sender: FDA-Public Use
  Company Number: US-PFIZER INC-2012261172

PATIENT
  Age: 54 Year
  Sex: Male
  Weight: 86.2 kg

DRUGS (11)
  1. DEPO-TESTOSTERONE [Suspect]
     Indication: TESTOSTERONE DEFICIENCY
     Dosage: 200 mg, UNK
     Route: 030
     Dates: start: 20121104
  2. DEPO-TESTOSTERONE [Suspect]
     Indication: IMPOTENCE
     Dosage: UNK, every two weeks (one or one and a quarter ml)
  3. DEPO-TESTOSTERONE [Suspect]
     Dosage: 200 mg, every 3 weeks
  4. SYMBICORT [Concomitant]
     Dosage: 160 mg, 2x/day
     Dates: start: 20120312
  5. LOSARTAN [Concomitant]
     Dosage: 100 mg, 1x/day
     Dates: start: 20120202
  6. LEVOXYL [Concomitant]
     Dosage: 88 ug, 1x/day
     Dates: start: 20110128
  7. PRISTIQ [Concomitant]
     Dosage: 50 mg, 1x/day
     Dates: start: 20091202
  8. AMBIEN [Concomitant]
     Dosage: 10 mg, 1 tablet every night
     Dates: start: 20091202
  9. METHADONE [Concomitant]
     Dosage: 100 mg, 1x/day
     Dates: start: 20081113
  10. XANAX [Concomitant]
     Dosage: 50 mg, 1x/day
     Dates: start: 20070321
  11. ADDERALL [Concomitant]
     Dosage: 30 mg, 2x/day
     Dates: start: 20070320

REACTIONS (5)
  - Radiculitis brachial [Unknown]
  - Pain in extremity [Unknown]
  - Hyperhidrosis [Unknown]
  - Product quality issue [Unknown]
  - Blood testosterone increased [Unknown]
